FAERS Safety Report 9393522 (Version 2)
Quarter: 2013Q3

REPORT INFORMATION
  Report Type: Report from Study
  Country: US (occurrence: US)
  Receive Date: 20130710
  Receipt Date: 20130827
  Transmission Date: 20140515
  Serious: Yes (Hospitalization)
  Sender: FDA-Public Use
  Company Number: US-GLAXOSMITHKLINE-A1031771A

PATIENT
  Age: 65 Year
  Sex: Male

DRUGS (16)
  1. OFATUMUMAB [Suspect]
     Indication: CHRONIC LYMPHOCYTIC LEUKAEMIA
     Dosage: 3000MG WEEKLY
     Route: 042
     Dates: start: 20130430
  2. INVESTIGATIONAL STUDY DRUG [Suspect]
     Indication: CHRONIC LYMPHOCYTIC LEUKAEMIA
     Dosage: 150MG TWICE PER DAY
     Route: 048
     Dates: start: 20130430
  3. LISINOPRIL [Suspect]
     Dates: start: 20041102
  4. OMEPRAZOLE [Suspect]
  5. METOPROLOL [Concomitant]
     Dates: start: 20130206
  6. LOVASTATIN [Concomitant]
     Dates: start: 20090708
  7. FINASTERIDE [Concomitant]
     Dates: start: 20080715
  8. ASA [Concomitant]
     Dates: start: 20040611
  9. CLOPIDOGREL [Concomitant]
     Dates: start: 20091210
  10. BACTRIM [Concomitant]
  11. SIMVASTATIN [Concomitant]
  12. RANITIDINE [Concomitant]
  13. NITROGLYCERIN [Concomitant]
  14. LOPERAMIDE [Concomitant]
  15. TOSITUMOMAB [Concomitant]
  16. THALOMID [Concomitant]

REACTIONS (1)
  - Hyponatraemia [Recovered/Resolved]
